FAERS Safety Report 8583354 (Version 3)
Quarter: 2015Q2

REPORT INFORMATION
  Report Type: Spontaneous
  Country: US (occurrence: US)
  Receive Date: 20120529
  Receipt Date: 20150525
  Transmission Date: 20150821
  Serious: Yes (Other)
  Sender: FDA-Public Use
  Company Number: US-JNJFOC-20110904020

PATIENT
  Sex: Female

DRUGS (2)
  1. LEVAQUIN [Suspect]
     Active Substance: LEVOFLOXACIN
     Indication: URINARY TRACT INFECTION
     Route: 048
     Dates: start: 200505
  2. DITROPAN [Concomitant]
     Active Substance: OXYBUTYNIN CHLORIDE
     Indication: NEUROGENIC BLADDER
     Route: 065

REACTIONS (17)
  - Tenosynovitis [Recovering/Resolving]
  - Insomnia [Unknown]
  - Panic attack [Unknown]
  - Tooth disorder [Unknown]
  - Hypoaesthesia [Unknown]
  - Tendonitis [Unknown]
  - Anxiety [Unknown]
  - Trismus [Unknown]
  - Myoclonus [Unknown]
  - Blood glucose decreased [Unknown]
  - Thyroid disorder [Unknown]
  - Rotator cuff syndrome [Unknown]
  - Joint injury [Unknown]
  - Heart rate irregular [Unknown]
  - Constipation [Unknown]
  - Tenosynovitis [Unknown]
  - White blood cell count increased [Unknown]
